FAERS Safety Report 4498239-2 (Version None)
Quarter: 2004Q3

REPORT INFORMATION
  Report Type: 
  Country: None (occurrence: None)
  Receive Date: 20040927
  Receipt Date: 20040608
  Transmission Date: 20050211
  Serious: No
  Sender: FDA-Public Use
  Company Number: USA040669590

PATIENT
  Age: 16 Year
  Sex: Male
  Weight: 75 kg

DRUGS (1)
  1. STRATTERA [Suspect]
     Indication: AGITATION
     Dosage: 80 MG IN THE EVENING

REACTIONS (5)
  - AGITATION [None]
  - BLOOD PRESSURE DIASTOLIC INCREASED [None]
  - FATIGUE [None]
  - HEART RATE INCREASED [None]
  - THINKING ABNORMAL [None]
